FAERS Safety Report 5519127-6 (Version None)
Quarter: 2007Q4

REPORT INFORMATION
  Report Type: 
  Country: None (occurrence: None)
  Receive Date: 20071114
  Receipt Date: 20071114
  Transmission Date: 20080405
  Serious: Yes (Life-Threatening)
  Sender: FDA-Public Use
  Company Number: None

PATIENT
  Sex: Female

DRUGS (1)
  1. SUMATRIPTAN, 4MG, GLAXOSMITHKLE [Suspect]
     Indication: MIGRAINE
     Dosage: 4MG IM
     Route: 030
     Dates: start: 20071005, end: 20071005

REACTIONS (5)
  - DIZZINESS [None]
  - DYSPNOEA [None]
  - FEELING HOT [None]
  - SWELLING [None]
  - THROAT TIGHTNESS [None]
